FAERS Safety Report 10034439 (Version 1)
Quarter: 2014Q1

REPORT INFORMATION
  Report Type: Spontaneous
  Country: US (occurrence: None)
  Receive Date: 20140324
  Receipt Date: 20140324
  Transmission Date: 20141002
  Serious: Yes (Other)
  Sender: FDA-Public Use
  Company Number: None

PATIENT
  Age: 64 Year
  Sex: Female
  Weight: 83.92 kg

DRUGS (1)
  1. PREPOPIK [Suspect]
     Indication: COLONOSCOPY
     Dosage: 2 PACKETS, TWICE DAILY, TAKEN BY MOUTH
     Route: 048
     Dates: start: 20140219

REACTIONS (6)
  - Chills [None]
  - Nausea [None]
  - Diarrhoea [None]
  - Dizziness [None]
  - Headache [None]
  - Flatulence [None]
